FAERS Safety Report 8542336-9 (Version None)
Quarter: 2012Q3

REPORT INFORMATION
  Report Type: 
  Country: None (occurrence: None)
  Receive Date: 20120726
  Receipt Date: 20110822
  Transmission Date: 20120928
  Serious: No
  Sender: FDA-Public Use
  Company Number: US-ASTRAZENECA-2011SE49483

PATIENT
  Age: 30 Year
  Sex: Female
  Weight: 122.9 kg

DRUGS (1)
  1. SEROQUEL [Suspect]
     Route: 048
     Dates: start: 20100101

REACTIONS (1)
  - SLEEP APNOEA SYNDROME [None]
